FAERS Safety Report 10724978 (Version 6)
Quarter: 2015Q1

REPORT INFORMATION
  Report Type: Spontaneous
  Country: IL (occurrence: IL)
  Receive Date: 20150120
  Receipt Date: 20150218
  Transmission Date: 20150721
  Serious: Yes (Hospitalization, Other)
  Sender: FDA-Public Use
  Company Number: IL-SHIRE-IL201500128

PATIENT
  Age: 6 Year
  Sex: Male
  Weight: 24 kg

DRUGS (3)
  1. ELAPRASE [Suspect]
     Active Substance: IDURSULFASE
     Dosage: 12 MG (2 VIALS), ALTERNATING WITH 18 MG WEEKLY)
     Route: 041
  2. FENISTIL [Concomitant]
     Active Substance: DIMETHINDENE
     Indication: PRODUCT USED FOR UNKNOWN INDICATION
     Dosage: 20 GTT, (HALF HOUR BEFORE ELAPRASE TREATMENT)
     Route: 065
  3. ELAPRASE [Suspect]
     Active Substance: IDURSULFASE
     Indication: MUCOPOLYSACCHARIDOSIS II
     Dosage: 18 MG (3 VIALS), ALTERNATING WITH 12 MG WEEKLY
     Route: 041

REACTIONS (9)
  - Tremor [Recovered/Resolved]
  - Chills [Recovered/Resolved]
  - Acinetobacter bacteraemia [Unknown]
  - Pyrexia [Recovered/Resolved]
  - Device related infection [Unknown]
  - Infusion related reaction [Recovered/Resolved]
  - Constipation [Recovered/Resolved]
  - Vomiting [Recovered/Resolved]
  - Restlessness [Recovered/Resolved]

NARRATIVE: CASE EVENT DATE: 2015
